FAERS Safety Report 8070375-3 (Version None)
Quarter: 2012Q1

REPORT INFORMATION
  Report Type: 
  Country: None (occurrence: None)
  Receive Date: 20120125
  Receipt Date: 20120118
  Transmission Date: 20120608
  Serious: Yes (Other)
  Sender: FDA-Public Use
  Company Number: US-PFIZER INC-2011299428

PATIENT
  Sex: Female
  Weight: 90.7 kg

DRUGS (10)
  1. GABAPENTIN [Suspect]
     Dosage: 600 MG, 3X/DAY
     Route: 048
  2. GABAPENTIN [Suspect]
     Dosage: 300 MG, 3X/DAY
     Route: 048
     Dates: end: 20090101
  3. PREVACID [Concomitant]
     Dosage: UNK
  4. POTASSIUM [Concomitant]
     Dosage: UNK
  5. PERCOCET [Concomitant]
     Dosage: UNK
  6. TOVIAZ [Suspect]
     Indication: INCONTINENCE
     Dosage: 1X/DAY
     Route: 048
     Dates: start: 20090101, end: 20111001
  7. LORTAB [Concomitant]
     Dosage: UNK
  8. NEXIUM [Concomitant]
     Dosage: UNK
  9. GABAPENTIN [Suspect]
     Indication: NEUROPATHY PERIPHERAL
     Dosage: UNK
     Route: 048
     Dates: start: 20080801
  10. LASIX [Concomitant]
     Dosage: UNK

REACTIONS (4)
  - ABDOMINAL PAIN LOWER [None]
  - BLADDER SPASM [None]
  - WEIGHT INCREASED [None]
  - INCONTINENCE [None]
